FAERS Safety Report 16340448 (Version 2)
Quarter: 2019Q3

REPORT INFORMATION
  Report Type: Spontaneous
  Country: US (occurrence: US)
  Receive Date: 20190522
  Receipt Date: 20190711
  Transmission Date: 20191004
  Serious: Yes (Hospitalization)
  Sender: FDA-Public Use
  Company Number: US-PFIZER INC-2019215596

PATIENT
  Age: 59 Year
  Sex: Female

DRUGS (4)
  1. DILANTIN [Suspect]
     Active Substance: PHENYTOIN
     Dosage: 100 MG, 4X/DAY
     Route: 048
     Dates: end: 20190407
  2. CELEBREX [Concomitant]
     Active Substance: CELECOXIB
  3. BENICAR [Concomitant]
     Active Substance: OLMESARTAN MEDOXOMIL
  4. DILANTIN [Suspect]
     Active Substance: PHENYTOIN
     Indication: SEIZURE
     Dosage: 100 MG, 4X/DAY
     Route: 048
     Dates: start: 2008

REACTIONS (8)
  - Fall [Recovered/Resolved]
  - Feeling abnormal [Recovered/Resolved]
  - Hallucination [Recovered/Resolved]
  - Drug level decreased [Unknown]
  - Depression [Recovered/Resolved]
  - Abdominal pain upper [Unknown]
  - Eating disorder [Recovered/Resolved]
  - Amnesia [Unknown]
